FAERS Safety Report 8261138-4 (Version None)
Quarter: 2012Q2

REPORT INFORMATION
  Report Type: 
  Country: None (occurrence: None)
  Receive Date: 20120405
  Receipt Date: 20120402
  Transmission Date: 20120825
  Serious: Yes (Hospitalization)
  Sender: FDA-Public Use
  Company Number: PHHY2012FR028808

PATIENT
  Sex: Male

DRUGS (11)
  1. AMLODIPINE BESYLATE [Concomitant]
  2. ZOFENIL [Concomitant]
  3. DURAGESIC-100 [Suspect]
     Indication: BONE PAIN
     Dosage: UNK UKN, UNK
     Route: 062
  4. ZOMETA [Suspect]
     Dosage: UNK UKN, UNK
     Dates: start: 20120131
  5. TENSTATEN [Concomitant]
  6. TRIVASTAL [Concomitant]
  7. ALFUZOSIN HCL [Concomitant]
  8. DURAGESIC-100 [Suspect]
     Dosage: 50 UG/HR, UNK
     Route: 062
  9. FLECAINIDE ACETATE [Concomitant]
  10. XANAX [Concomitant]
  11. PROPRANOLOL [Concomitant]

REACTIONS (3)
  - FALL [None]
  - DIZZINESS [None]
  - MALAISE [None]
